FAERS Safety Report 15485027 (Version 1)
Quarter: 2018Q4

REPORT INFORMATION
  Report Type: Spontaneous
  Country: US (occurrence: US)
  Receive Date: 20181010
  Receipt Date: 20181010
  Transmission Date: 20190205
  Serious: No
  Sender: FDA-Public Use
  Company Number: US-ROCHE-2146978

PATIENT
  Sex: Male

DRUGS (3)
  1. ESBRIET [Suspect]
     Active Substance: PIRFENIDONE
     Dosage: 1 PILL  ;ONGOING: UNKNOWN
     Route: 065
  2. ESBRIET [Suspect]
     Active Substance: PIRFENIDONE
     Dosage: 2 PILLS WITH BREAKFAST, LUNCH AND DINNER
     Route: 065
     Dates: start: 20180611
  3. ESBRIET [Suspect]
     Active Substance: PIRFENIDONE
     Indication: PRODUCT USED FOR UNKNOWN INDICATION
     Dosage: 3 PILLS IN A DAY
     Route: 065
     Dates: start: 20180604

REACTIONS (3)
  - Chromaturia [Unknown]
  - Incorrect dose administered [Unknown]
  - Fatigue [Unknown]

NARRATIVE: CASE EVENT DATE: 20180604
